FAERS Safety Report 7837577-X (Version None)
Quarter: 2011Q4

REPORT INFORMATION
  Report Type: 
  Country: None (occurrence: None)
  Receive Date: 20111024
  Receipt Date: 20110203
  Transmission Date: 20120403
  Serious: No
  Sender: FDA-Public Use
  Company Number: US-ABBOTT-11P-163-0702938-00

PATIENT
  Age: 25 Year
  Sex: Female

DRUGS (1)
  1. LUPRON DEPOT [Suspect]
     Indication: ENDOMETRIOSIS

REACTIONS (10)
  - DIZZINESS [None]
  - IRRITABILITY [None]
  - FATIGUE [None]
  - INSOMNIA [None]
  - HEADACHE [None]
  - NIGHT SWEATS [None]
  - CHEST DISCOMFORT [None]
  - MOOD ALTERED [None]
  - HOT FLUSH [None]
  - MEMORY IMPAIRMENT [None]
